FAERS Safety Report 6866208-0 (Version None)
Quarter: 2010Q3

REPORT INFORMATION
  Report Type: 
  Country: None (occurrence: None)
  Receive Date: 20100722
  Receipt Date: 20100720
  Transmission Date: 20110219
  Serious: Yes (Other)
  Sender: FDA-Public Use
  Company Number: US-ASTRAZENECA-2006UW07726

PATIENT
  Age: 19584 Day
  Sex: Male
  Weight: 88 kg

DRUGS (19)
  1. SEROQUEL [Suspect]
     Indication: ANXIETY
     Dosage: 25MG-100MG
     Route: 048
     Dates: start: 19980817
  2. SEROQUEL [Suspect]
     Indication: DEPRESSION
     Dosage: 25MG-100MG
     Route: 048
     Dates: start: 19980817
  3. SEROQUEL [Suspect]
     Route: 048
     Dates: start: 20020808, end: 20040319
  4. SEROQUEL [Suspect]
     Route: 048
     Dates: start: 20020808, end: 20040319
  5. ZOCOR [Concomitant]
  6. PLAVIX [Concomitant]
  7. NEURONTIN [Concomitant]
  8. VIAGRA [Concomitant]
  9. PREVACID [Concomitant]
  10. DEMEROL [Concomitant]
  11. VIOXX [Concomitant]
  12. TOPROL-XL [Concomitant]
  13. PROTONIX [Concomitant]
  14. LASIX [Concomitant]
  15. NITROGLYCERIN [Concomitant]
  16. ASPIRIN [Concomitant]
  17. HUMULIN R [Concomitant]
  18. ELAVIL [Concomitant]
  19. NARCAN [Concomitant]

REACTIONS (3)
  - DIABETES MELLITUS [None]
  - DIABETIC NEUROPATHY [None]
  - TYPE 1 DIABETES MELLITUS [None]
